FAERS Safety Report 7619183-5 (Version None)
Quarter: 2011Q3

REPORT INFORMATION
  Report Type: 
  Country: None (occurrence: None)
  Receive Date: 20110718
  Receipt Date: 20110704
  Transmission Date: 20111222
  Serious: Yes (Other)
  Sender: FDA-Public Use
  Company Number: PHHY2011CA40939

PATIENT
  Sex: Female

DRUGS (1)
  1. ZOLEDRONOC ACID [Suspect]
     Indication: OSTEOPOROSIS
     Dosage: 5 MG,
     Route: 042
     Dates: start: 20100413

REACTIONS (6)
  - MALAISE [None]
  - KIDNEY INFECTION [None]
  - HAEMATURIA [None]
  - URINARY TRACT INFECTION [None]
  - PAIN [None]
  - ORAL PAIN [None]
